FAERS Safety Report 6540568-2 (Version None)
Quarter: 2010Q1

REPORT INFORMATION
  Report Type: 
  Country: None (occurrence: None)
  Receive Date: 20100113
  Receipt Date: 20100104
  Transmission Date: 20100710
  Serious: Yes (Hospitalization, Other)
  Sender: FDA-Public Use
  Company Number: 2010US000015

PATIENT
  Age: 46 Year
  Sex: Male

DRUGS (3)
  1. PROGRAF [Suspect]
     Indication: RENAL TRANSPLANT
     Dates: start: 20060101
  2. MYCOPHENOLATE SODIUM (MYCOPHENOLATE SODIUM) [Suspect]
     Indication: RENAL TRANSPLANT
     Dates: start: 20060101
  3. PREDNISONE [Suspect]
     Indication: RENAL TRANSPLANT
     Dates: start: 20060101

REACTIONS (5)
  - ADENOVIRAL HAEMORRHAGIC CYSTITIS [None]
  - CYSTITIS EROSIVE [None]
  - CYTOMEGALOVIRUS GASTROINTESTINAL INFECTION [None]
  - LYMPHOCELE [None]
  - RENAL IMPAIRMENT [None]
